FAERS Safety Report 11767393 (Version 2)
Quarter: 2015Q4

REPORT INFORMATION
  Report Type: Report from Study
  Country: DE (occurrence: DE)
  Receive Date: 20151123
  Receipt Date: 20151217
  Transmission Date: 20160304
  Serious: Yes (Hospitalization)
  Sender: FDA-Public Use
  Company Number: DE-ROCHE-1663012

PATIENT
  Age: 77 Year
  Sex: Female
  Weight: 47 kg

DRUGS (18)
  1. LOPERAMID [Suspect]
     Active Substance: LOPERAMIDE
     Route: 065
     Dates: start: 20151118, end: 20151202
  2. METOHEXAL [Concomitant]
     Active Substance: METOPROLOL SUCCINATE
     Route: 065
     Dates: start: 201404
  3. ASPIRIN. [Concomitant]
     Active Substance: ASPIRIN
     Route: 065
     Dates: start: 2000
  4. PACLITAXEL. [Suspect]
     Active Substance: PACLITAXEL
     Indication: BREAST CANCER METASTATIC
     Dosage: LAST DOSE PRIOR TO SAE ON 11/NOV/2015
     Route: 042
     Dates: start: 20151021, end: 20151202
  5. LOPERAMID [Suspect]
     Active Substance: LOPERAMIDE
     Indication: DIARRHOEA
     Route: 065
     Dates: start: 20151021
  6. RAMIPRIL. [Concomitant]
     Active Substance: RAMIPRIL
     Route: 065
     Dates: start: 201404
  7. PERTUZUMAB [Suspect]
     Active Substance: PERTUZUMAB
     Indication: BREAST CANCER METASTATIC
     Dosage: LOADING DOSE
     Route: 042
     Dates: start: 20151021
  8. PANTOPRAZOL [Concomitant]
     Active Substance: PANTOPRAZOLE SODIUM
     Route: 065
     Dates: start: 201404
  9. REKAWAN [Concomitant]
     Active Substance: POTASSIUM CHLORIDE
     Route: 065
     Dates: start: 20151112
  10. RO 5479599 (ANTI-HER3 MAB) [Suspect]
     Active Substance: LUMRETUZUMAB
     Indication: BREAST CANCER METASTATIC
     Dosage: LAST DOSE PRIOR TO SAE ON 11/NOV/2015
     Route: 042
     Dates: start: 20151022
  11. LOPERAMID [Suspect]
     Active Substance: LOPERAMIDE
     Route: 065
     Dates: start: 20151204
  12. PERTUZUMAB [Suspect]
     Active Substance: PERTUZUMAB
     Dosage: MAINTENANCE DOSE.?LAST DOSE PRIOR TO SAE ON 11/NOV/2015.
     Route: 042
     Dates: end: 20151202
  13. TINCTURA OPII NORMATA [Suspect]
     Active Substance: OPIUM TINCTURE
     Indication: DIARRHOEA
     Route: 065
     Dates: start: 20151125, end: 20151202
  14. SIMVASTATIN. [Concomitant]
     Active Substance: SIMVASTATIN
     Route: 065
     Dates: start: 201404
  15. MUCOFALK [Concomitant]
     Route: 065
     Dates: start: 20151126
  16. PERENTEROL [Concomitant]
     Active Substance: SACCHAROMYCES CEREVISIAE
     Route: 065
     Dates: start: 20151125
  17. NOVALGIN [Concomitant]
     Active Substance: METAMIZOLE SODIUM
     Route: 065
     Dates: start: 20151130
  18. JODID [Concomitant]
     Active Substance: IODINE
     Route: 065
     Dates: start: 201004

REACTIONS (6)
  - General physical health deterioration [Recovered/Resolved]
  - Urinary tract infection [None]
  - Gastric ulcer [None]
  - Ileus paralytic [Recovered/Resolved]
  - Gastritis [None]
  - Helicobacter test positive [None]

NARRATIVE: CASE EVENT DATE: 20151114
